FAERS Safety Report 23972113 (Version 1)
Quarter: 2024Q2

REPORT INFORMATION
  Report Type: Spontaneous
  Country: US (occurrence: None)
  Receive Date: 20240612
  Receipt Date: 20240612
  Transmission Date: 20240716
  Serious: Yes (Other)
  Sender: FDA-Public Use
  Company Number: None

PATIENT
  Age: 62 Year
  Sex: Male

DRUGS (6)
  1. ELIQUIS [Suspect]
     Active Substance: APIXABAN
     Dosage: FREQUENCY : TWICE A DAY;?
     Route: 048
     Dates: start: 20240213, end: 20240531
  2. ALBUTEROL SULFATE [Concomitant]
     Active Substance: ALBUTEROL SULFATE
     Dates: start: 20230524
  3. ATORVASTATIN [Concomitant]
     Active Substance: ATORVASTATIN
     Dates: start: 20220222
  4. diclofenac dr 75mg [Concomitant]
     Dates: start: 20210322
  5. LISINOPRIL [Concomitant]
     Active Substance: LISINOPRIL
     Dates: start: 20210326
  6. vitamin d 1250mcg [Concomitant]
     Dates: start: 20210322

REACTIONS (4)
  - Arthralgia [None]
  - Arthralgia [None]
  - Joint swelling [None]
  - Arthritis [None]

NARRATIVE: CASE EVENT DATE: 20240306
